FAERS Safety Report 5068126-X (Version None)
Quarter: 2006Q3

REPORT INFORMATION
  Report Type: 
  Country: None (occurrence: None)
  Receive Date: 20060731
  Receipt Date: 20060720
  Transmission Date: 20061208
  Serious: Yes (Other)
  Sender: FDA-Public Use
  Company Number: 2006-07-0712

PATIENT
  Age: 77 Year
  Sex: Male
  Weight: 94 kg

DRUGS (6)
  1. TEMOZOLOMIDE CAPSULES [Suspect]
     Indication: METASTATIC MALIGNANT MELANOMA
     Dosage: 280MG ORAL
     Route: 048
     Dates: start: 20051107, end: 20060702
  2. TEMOZOLOMIDE CAPSULES [Suspect]
     Indication: METASTATIC MALIGNANT MELANOMA
     Dosage: 280MG ORAL
     Route: 048
     Dates: start: 20051107, end: 20060711
  3. TEMOZOLOMIDE CAPSULES [Suspect]
     Indication: METASTATIC MALIGNANT MELANOMA
     Dosage: 280MG ORAL
     Route: 048
     Dates: start: 20060710, end: 20060711
  4. LASIX [Concomitant]
  5. ZOFRAN [Concomitant]
  6. ARICEPT [Concomitant]

REACTIONS (5)
  - HAEMATOTOXICITY [None]
  - RASH ERYTHEMATOUS [None]
  - RASH MACULO-PAPULAR [None]
  - SCHAMBERG'S DISEASE [None]
  - SKIN OEDEMA [None]
